FAERS Safety Report 9431221 (Version 2)
Quarter: 2014Q2

REPORT INFORMATION
  Report Type: Report from Study
  Country: CA (occurrence: CA)
  Receive Date: 20130730
  Receipt Date: 20140512
  Transmission Date: 20141212
  Serious: Yes (Other)
  Sender: FDA-Public Use
  Company Number: CA-ROCHE-1233534

PATIENT
  Age: 68 Year
  Sex: Male
  Weight: 63 kg

DRUGS (7)
  1. ACTEMRA [Suspect]
     Indication: RHEUMATOID ARTHRITIS
     Route: 042
     Dates: start: 20121123, end: 20130508
  2. RITUXAN [Suspect]
     Indication: RHEUMATOID ARTHRITIS
     Dosage: DAY 1 AND DAY 15
     Route: 042
     Dates: start: 20130709
  3. CRESTOR [Concomitant]
     Route: 065
  4. PREDNISONE [Concomitant]
  5. TYLENOL [Concomitant]
     Route: 048
     Dates: start: 20130709
  6. BENADRYL (CANADA) [Concomitant]
     Route: 048
     Dates: start: 20130709
  7. SOLU-MEDROL [Concomitant]
     Route: 042
     Dates: start: 20130709

REACTIONS (4)
  - Drug ineffective [Unknown]
  - Cardiac disorder [Unknown]
  - Blood pressure increased [Recovered/Resolved]
  - Heart rate increased [Recovered/Resolved]
